FAERS Safety Report 5618145-7 (Version None)
Quarter: 2008Q1

REPORT INFORMATION
  Report Type: 
  Country: None (occurrence: None)
  Receive Date: 20080207
  Receipt Date: 20071008
  Transmission Date: 20080703
  Serious: No
  Sender: FDA-Public Use
  Company Number: A0686962A

PATIENT
  Sex: Male

DRUGS (1)
  1. PAXIL [Suspect]
     Indication: BIPOLAR DISORDER
     Route: 048
     Dates: start: 20040101

REACTIONS (2)
  - DRUG INEFFECTIVE [None]
  - MENTAL IMPAIRMENT [None]
